FAERS Safety Report 12610096 (Version 1)
Quarter: 2016Q3

REPORT INFORMATION
  Report Type: Spontaneous
  Country: None (occurrence: None)
  Receive Date: 20160729
  Receipt Date: 20160729
  Transmission Date: 20161109
  Serious: No
  Sender: FDA-Public Use
  Company Number: None

PATIENT
  Sex: Female
  Weight: 56.25 kg

DRUGS (4)
  1. COMPLEX B [Concomitant]
     Active Substance: CALCIUM PANTOTHENATE\CYANOCOBALAMIN\NIACINAMIDE\PYRIDOXINE HYDROCHLORIDE\RIBOFLAVIN\THIAMINE MONONITRATE
  2. MULTIVITAMIN [Concomitant]
     Active Substance: VITAMINS
  3. NUCYNTA [Suspect]
     Active Substance: TAPENTADOL HYDROCHLORIDE
     Indication: PAIN
     Route: 048
     Dates: start: 20160630, end: 20160726
  4. VITAMIN C [Concomitant]
     Active Substance: ASCORBIC ACID

REACTIONS (6)
  - Gingival swelling [None]
  - Nightmare [None]
  - Gingival bleeding [None]
  - Toothache [None]
  - Alopecia [None]
  - Gingival pain [None]

NARRATIVE: CASE EVENT DATE: 20160706
